FAERS Safety Report 7519531-0 (Version None)
Quarter: 2011Q2

REPORT INFORMATION
  Report Type: 
  Country: None (occurrence: None)
  Receive Date: 20110602
  Receipt Date: 20110517
  Transmission Date: 20111010
  Serious: Yes (Disabling, Other)
  Sender: FDA-Public Use
  Company Number: US-BAYER-2011-042879

PATIENT
  Age: 45 Year
  Sex: Male
  Weight: 85.714 kg

DRUGS (6)
  1. CHANTIX [Suspect]
     Indication: SMOKING CESSATION THERAPY
     Dosage: UNK
     Route: 048
     Dates: start: 20060828, end: 20060101
  2. REQUIP [Concomitant]
     Indication: RESTLESS LEGS SYNDROME
     Dosage: UNK
  3. CORTISONE ACETATE [Concomitant]
     Indication: TENDONITIS
  4. NAPROXEN (ALEVE) [Suspect]
     Indication: TENDONITIS
     Dosage: UNK
  5. CHANTIX [Suspect]
     Dosage: DAILY DOSE .5 MG
     Route: 048
     Dates: start: 20110115
  6. LIPITOR [Concomitant]
     Indication: BLOOD TRIGLYCERIDES INCREASED
     Dosage: UNK

REACTIONS (4)
  - PERSONALITY CHANGE [None]
  - DIARRHOEA HAEMORRHAGIC [None]
  - DIARRHOEA [None]
  - AGRAPHIA [None]
